FAERS Safety Report 8990958 (Version 3)
Quarter: 2013Q1

REPORT INFORMATION
  Report Type: Spontaneous
  Country: JP (occurrence: None)
  Receive Date: 20121220
  Receipt Date: 20130315
  Transmission Date: 20140127
  Serious: Yes (Hospitalization, Other)
  Sender: FDA-Public Use
  Company Number: SP06288

PATIENT
  Age: 40 Year
  Sex: Female

DRUGS (3)
  1. VISICOL [Suspect]
     Indication: ENDOSCOPY LARGE BOWEL
     Dosage: 50 TABLETS DIVIDED INTO 10 DOSES), ORAL
     Route: 048
     Dates: start: 20121203, end: 20121203
  2. SENNA EXTRACT [Concomitant]
  3. SODIUM PICOSULFATE HYDRATE [Concomitant]

REACTIONS (9)
  - Hypoaesthesia [None]
  - Hypoaesthesia [None]
  - Renal failure acute [None]
  - Dialysis [None]
  - Hypoaesthesia [None]
  - Face oedema [None]
  - Oedema peripheral [None]
  - Malaise [None]
  - Acute phosphate nephropathy [None]
